FAERS Safety Report 20203052 (Version 1)
Quarter: 2021Q4

REPORT INFORMATION
  Report Type: Spontaneous
  Country: US (occurrence: US)
  Receive Date: 20211218
  Receipt Date: 20211218
  Transmission Date: 20220303
  Serious: Yes (Other)
  Sender: FDA-Public Use
  Company Number: US-NOVARTISTESTPH-NVSC2021US285385

PATIENT
  Age: 70 Year
  Sex: Female

DRUGS (1)
  1. BROLUCIZUMAB [Suspect]
     Active Substance: BROLUCIZUMAB
     Indication: Neovascular age-related macular degeneration
     Dosage: UNK (POST 3 RD INJECTION)
     Route: 065

REACTIONS (5)
  - Iridocyclitis [Recovered/Resolved]
  - Vitritis [Recovering/Resolving]
  - Cataract [Recovering/Resolving]
  - Visual impairment [Recovered/Resolved]
  - Blindness transient [Recovered/Resolved]
